FAERS Safety Report 12640817 (Version 3)
Quarter: 2016Q3

REPORT INFORMATION
  Report Type: Report from Study
  Country: JP (occurrence: JP)
  Receive Date: 20160810
  Receipt Date: 20160826
  Transmission Date: 20161109
  Serious: Yes (Other)
  Sender: FDA-Public Use
  Company Number: JP-SA-2016SA144535

PATIENT

DRUGS (3)
  1. TRASTUZUMAB [Concomitant]
     Active Substance: TRASTUZUMAB
  2. DOCETAXEL. [Suspect]
     Active Substance: DOCETAXEL
     Indication: HER-2 POSITIVE BREAST CANCER
     Route: 042
  3. PERTUZUMAB [Concomitant]
     Active Substance: PERTUZUMAB

REACTIONS (1)
  - Pulmonary toxicity [Unknown]
